FAERS Safety Report 14567646 (Version 1)
Quarter: 2018Q1

REPORT INFORMATION
  Report Type: Report from Study
  Country: ES (occurrence: ES)
  Receive Date: 20180223
  Receipt Date: 20180223
  Transmission Date: 20180509
  Serious: Yes (Hospitalization)
  Sender: FDA-Public Use
  Company Number: ES-TEVA-2018-ES-859521

PATIENT
  Age: 80 Year
  Sex: Female

DRUGS (7)
  1. OMEPRAZOL 20 [Concomitant]
     Active Substance: OMEPRAZOLE
     Dosage: 1-0-0
     Route: 048
     Dates: start: 20010101
  2. SIMVASTATINA 10 [Concomitant]
     Dosage: 0-0-1
     Route: 048
     Dates: start: 20010101
  3. FLUOXETINA 20 [Concomitant]
     Dosage: 0-0-1
     Route: 048
     Dates: start: 20130101
  4. AMLODIPINO 5 [Concomitant]
     Dosage: 1-0-0
     Route: 048
     Dates: start: 20010101
  5. INDAPAMIDE. [Suspect]
     Active Substance: INDAPAMIDE
     Dosage: 1-0-0
     Route: 048
     Dates: start: 20010101, end: 20170426
  6. LEXATIN 1.5 [Concomitant]
     Dosage: 1-0-0
     Route: 048
     Dates: start: 20130101
  7. SERC 8 MG COMPRIMIDOS , 60 COMPRIMIDOS [Concomitant]
     Dosage: 1-1-1
     Route: 048

REACTIONS (4)
  - Hypokalaemia [Recovered/Resolved]
  - Metabolic alkalosis [Recovered/Resolved]
  - Decreased appetite [Recovered/Resolved]
  - Polydipsia [Recovered/Resolved]

NARRATIVE: CASE EVENT DATE: 20170426
